FAERS Safety Report 9154258 (Version 5)
Quarter: 2013Q2

REPORT INFORMATION
  Report Type: Report from Study
  Country: SE (occurrence: SE)
  Receive Date: 20130311
  Receipt Date: 20130513
  Transmission Date: 20140414
  Serious: Yes (Life-Threatening, Other)
  Sender: FDA-Public Use
  Company Number: SE-AMGEN-SWESP2013016302

PATIENT
  Age: 64 Year
  Sex: Male

DRUGS (11)
  1. ETANERCEPT [Suspect]
     Indication: PSORIATIC ARTHROPATHY
     Dosage: 50 MG, ONCE A WEEK
     Route: 058
     Dates: start: 20101223, end: 20130227
  2. ETANERCEPT [Suspect]
     Indication: PSORIASIS
  3. METHOTREXATE [Concomitant]
     Indication: PSORIATIC ARTHROPATHY
     Dosage: 17.5 MG, WEEKLY
     Dates: start: 199811
  4. METHOTREXATE [Concomitant]
     Indication: PSORIATIC ARTHROPATHY
  5. FOLACIN                            /00024201/ [Concomitant]
     Dosage: 5 MG, 1X/DAY
     Dates: start: 2003
  6. ATENOLOL [Concomitant]
     Dosage: 50 MG, 1X/DAY
     Dates: start: 2010
  7. AMLODIPINE [Concomitant]
     Dosage: 5 MG, 1X/DAY
     Dates: start: 2008
  8. APROVEL [Concomitant]
     Dosage: 150 MG, 1X/DAY
     Dates: start: 2008
  9. FINASTERIDE [Concomitant]
     Dosage: 5 MG, UNK
     Dates: start: 2010
  10. SERTRALINE [Concomitant]
     Dosage: 50 MG, 1X/DAY
     Dates: start: 2003
  11. KESTINE [Concomitant]
     Dosage: 10 MG, UNK
     Dates: start: 2008

REACTIONS (1)
  - Amyotrophic lateral sclerosis [Unknown]
